FAERS Safety Report 10543657 (Version 1)
Quarter: 2014Q4

REPORT INFORMATION
  Report Type: Spontaneous
  Country: US (occurrence: US)
  Receive Date: 20141027
  Receipt Date: 20141027
  Transmission Date: 20150529
  Serious: No
  Sender: FDA-Public Use
  Company Number: US-BAUSCH-SYM-2014-20451

PATIENT
  Age: 64 Year
  Sex: Female
  Weight: 70.37 kg

DRUGS (2)
  1. ATIVAN [Suspect]
     Active Substance: LORAZEPAM
     Indication: ANXIETY
     Route: 048
  2. ATIVAN [Suspect]
     Active Substance: LORAZEPAM
     Indication: PANIC ATTACK

REACTIONS (1)
  - Panic attack [Unknown]

NARRATIVE: CASE EVENT DATE: 201404
